FAERS Safety Report 6363405-8 (Version None)
Quarter: 2009Q3

REPORT INFORMATION
  Report Type: 
  Country: None (occurrence: None)
  Receive Date: 20090919
  Receipt Date: 20090624
  Transmission Date: 20100115
  Serious: No
  Sender: FDA-Public Use
  Company Number: US-ABBOTT-09P-163-0581952-00

PATIENT
  Sex: Female
  Weight: 72.64 kg

DRUGS (14)
  1. HUMIRA [Suspect]
     Indication: RHEUMATOID ARTHRITIS
     Route: 058
     Dates: start: 20070101
  2. METHOTREXATE [Concomitant]
     Indication: RHEUMATOID ARTHRITIS
  3. MOBIC [Concomitant]
     Indication: ANTIINFLAMMATORY THERAPY
  4. PREDNISONE [Concomitant]
     Indication: DRUG USE FOR UNKNOWN INDICATION
  5. VIT D [Concomitant]
     Indication: DRUG USE FOR UNKNOWN INDICATION
  6. FOLIC ACID [Concomitant]
     Indication: DRUG USE FOR UNKNOWN INDICATION
  7. LISINOPRIL [Concomitant]
     Indication: DRUG USE FOR UNKNOWN INDICATION
  8. IMITREX [Concomitant]
     Indication: MIGRAINE
  9. FIORINAL [Concomitant]
     Indication: DRUG USE FOR UNKNOWN INDICATION
  10. NADOLOL [Concomitant]
     Indication: TRIGEMINAL NEURALGIA
  11. LEXAPRO [Concomitant]
     Indication: ANXIETY
  12. TRAZODONE [Concomitant]
     Indication: INSOMNIA
     Dosage: 1-2 AS NEEDED
  13. LORAZEPAM [Concomitant]
     Indication: ANXIETY
     Dosage: UP TO TID
  14. UNKNOWN MEDICATION FOR BONE DENISITY [Concomitant]
     Indication: DRUG USE FOR UNKNOWN INDICATION

REACTIONS (1)
  - HEADACHE [None]
